FAERS Safety Report 8819816 (Version 2)
Quarter: 2012Q4

REPORT INFORMATION
  Report Type: 
  Country: VE (occurrence: VE)
  Receive Date: 20121001
  Receipt Date: 20121003
  Transmission Date: 20130627
  Serious: Yes (Death, Other)
  Sender: FDA-Public Use
  Company Number: VE-PFIZER INC-2012241304

PATIENT
  Age: 63 Year
  Sex: Female

DRUGS (2)
  1. LIPITOR [Suspect]
     Indication: HYPERCHOLESTEROLAEMIA
     Dosage: 40 mg, 1x/day
     Route: 048
     Dates: start: 2007, end: 20120207
  2. LIPITOR [Suspect]
     Indication: HYPERTRIGLYCERIDAEMIA

REACTIONS (2)
  - Neoplasm malignant [Fatal]
  - Depression [Not Recovered/Not Resolved]
